FAERS Safety Report 19398195 (Version 1)
Quarter: 2021Q2

REPORT INFORMATION
  Report Type: Spontaneous
  Country: US (occurrence: US)
  Receive Date: 20210609
  Receipt Date: 20210609
  Transmission Date: 20210717
  Serious: Yes (Disabling)
  Sender: FDA-Public Use
  Company Number: None

PATIENT
  Age: 28 Year
  Sex: Female
  Weight: 96.75 kg

DRUGS (7)
  1. ALTAVERA [Suspect]
     Active Substance: ETHINYL ESTRADIOL\LEVONORGESTREL
     Indication: MENSTRUAL DISORDER
     Dates: start: 20210528, end: 20210608
  2. VITAMIN B12 [Concomitant]
     Active Substance: CYANOCOBALAMIN
  3. GLYCOPYRROLATE. [Concomitant]
     Active Substance: GLYCOPYRROLATE
  4. MIRENA [Suspect]
     Active Substance: LEVONORGESTREL
     Indication: MENSTRUAL DISORDER
     Dates: start: 20170315, end: 20201023
  5. MULTIVITAMIN [Concomitant]
     Active Substance: VITAMINS
  6. VITAMIN D [Concomitant]
     Active Substance: VITAMIN D NOS
  7. PHENTERMINE. [Concomitant]
     Active Substance: PHENTERMINE

REACTIONS (15)
  - Fatigue [None]
  - Ectopic pregnancy [None]
  - Impaired work ability [None]
  - Irritability [None]
  - Ankylosing spondylitis [None]
  - Malaise [None]
  - Chronic fatigue syndrome [None]
  - Depression [None]
  - Weight decreased [None]
  - Feeling abnormal [None]
  - Stress [None]
  - Chest discomfort [None]
  - Mood altered [None]
  - Exercise tolerance decreased [None]
  - Anxiety [None]

NARRATIVE: CASE EVENT DATE: 20170315
